FAERS Safety Report 7272102-6 (Version None)
Quarter: 2011Q1

REPORT INFORMATION
  Report Type: 
  Country: None (occurrence: None)
  Receive Date: 20110203
  Receipt Date: 20110114
  Transmission Date: 20110831
  Serious: No
  Sender: FDA-Public Use
  Company Number: US-B.I. PHARMACEUTICALS,INC./RIDGEFIELD-2011-BP-01872BP

PATIENT
  Sex: Male

DRUGS (7)
  1. SIMVASTATIN [Concomitant]
     Indication: BLOOD CHOLESTEROL INCREASED
  2. ALTACE [Concomitant]
     Indication: HYPERTENSION
  3. MICARDIS [Suspect]
     Dosage: 160 MG
     Route: 048
     Dates: start: 20090101
  4. COREG [Concomitant]
     Indication: HYPERTENSION
  5. MICARDIS [Suspect]
     Indication: HYPERTENSION
     Dosage: 80 MG
     Route: 048
     Dates: start: 20040101, end: 20090101
  6. ZETIA [Concomitant]
     Indication: BLOOD CHOLESTEROL INCREASED
  7. NEXIUM [Concomitant]
     Indication: ABDOMINAL DISCOMFORT

REACTIONS (2)
  - JOINT SWELLING [None]
  - OEDEMA PERIPHERAL [None]
